FAERS Safety Report 11984121 (Version 1)
Quarter: 2016Q1

REPORT INFORMATION
  Report Type: Report from Study
  Country: US (occurrence: US)
  Receive Date: 20160201
  Receipt Date: 20160201
  Transmission Date: 20160526
  Serious: Yes (Other)
  Sender: FDA-Public Use
  Company Number: US-UCBSA-2016003026

PATIENT
  Age: 53 Year
  Sex: Female
  Weight: 113.3 kg

DRUGS (3)
  1. LACOSAMIDE [Suspect]
     Active Substance: LACOSAMIDE
     Indication: SEIZURE
     Dosage: 20 ML, 2X/DAY (BID)
     Route: 048
  2. LACOSAMIDE [Suspect]
     Active Substance: LACOSAMIDE
     Dosage: UNKNOWN DOSE (1/2 DOSE)
     Route: 048
     Dates: end: 20160113
  3. ONFI [Concomitant]
     Active Substance: CLOBAZAM
     Indication: PRODUCT USED FOR UNKNOWN INDICATION
     Dosage: UNK

REACTIONS (13)
  - Tonsil cancer [Recovered/Resolved]
  - Headache [Recovering/Resolving]
  - Nervousness [Recovering/Resolving]
  - Fatigue [Not Recovered/Not Resolved]
  - Dizziness [Not Recovered/Not Resolved]
  - Mental impairment [Recovering/Resolving]
  - Renal cancer [Unknown]
  - Drug dose omission [Unknown]
  - Dysphagia [Recovering/Resolving]
  - Irritability [Recovering/Resolving]
  - Intentional product misuse [Unknown]
  - Coordination abnormal [Recovering/Resolving]
  - Amnesia [Recovering/Resolving]

NARRATIVE: CASE EVENT DATE: 2011
